FAERS Safety Report 5311795-7 (Version None)
Quarter: 2007Q2

REPORT INFORMATION
  Report Type: 
  Country: None (occurrence: None)
  Receive Date: 20070430
  Receipt Date: 20070214
  Transmission Date: 20071010
  Serious: No
  Sender: FDA-Public Use
  Company Number: 2006UW00233

PATIENT
  Age: 798 Month
  Sex: Female
  Weight: 65.7 kg

DRUGS (14)
  1. NEXIUM [Suspect]
     Indication: POLYP
     Route: 048
     Dates: start: 20050601, end: 20051213
  2. NEXIUM [Suspect]
     Indication: INFLAMMATION
     Route: 048
     Dates: start: 20050601, end: 20051213
  3. NEXIUM [Suspect]
     Route: 048
     Dates: start: 20051220
  4. NEXIUM [Suspect]
     Route: 048
     Dates: start: 20051220
  5. IRON [Concomitant]
  6. CORAL [Concomitant]
  7. CALCIUM WITH MAGNESIUM [Concomitant]
  8. VITAMIN E [Concomitant]
  9. PAPAYA [Concomitant]
  10. BETACAROTENE [Concomitant]
  11. GARLIC [Concomitant]
  12. VITAMIN B COMPLEX CAP [Concomitant]
  13. LECITHIN ULTRA SOYA [Concomitant]
  14. GINSENG [Concomitant]

REACTIONS (9)
  - ABDOMINAL PAIN LOWER [None]
  - ABDOMINAL PAIN UPPER [None]
  - ALOPECIA [None]
  - FLATULENCE [None]
  - FREQUENT BOWEL MOVEMENTS [None]
  - HAIR COLOUR CHANGES [None]
  - HEADACHE [None]
  - ILL-DEFINED DISORDER [None]
  - RASH [None]
